FAERS Safety Report 7113685-6 (Version None)
Quarter: 2010Q4

REPORT INFORMATION
  Report Type: 
  Country: None (occurrence: None)
  Receive Date: 20101119
  Receipt Date: 20101115
  Transmission Date: 20110411
  Serious: Yes (Hospitalization)
  Sender: FDA-Public Use
  Company Number: DE-ABBOTT-10P-062-0653535-00

PATIENT
  Sex: Female
  Weight: 60 kg

DRUGS (2)
  1. HUMIRA [Suspect]
     Indication: CROHN'S DISEASE
     Route: 058
     Dates: start: 20100121
  2. ENTOCORT EC [Concomitant]
     Indication: CROHN'S DISEASE
     Route: 048
     Dates: start: 20100715

REACTIONS (2)
  - ABDOMINAL PAIN [None]
  - SUBILEUS [None]
